FAERS Safety Report 4521197-9 (Version None)
Quarter: 2004Q4

REPORT INFORMATION
  Report Type: 
  Country: None (occurrence: None)
  Receive Date: 20041203
  Receipt Date: 20041125
  Transmission Date: 20050328
  Serious: Yes (Life-Threatening)
  Sender: FDA-Public Use
  Company Number: 2004AP05998

PATIENT
  Age: 78 Year
  Sex: Male

DRUGS (8)
  1. OMEPRAL [Suspect]
     Dosage: 20 MG DAILY; PO
     Route: 048
     Dates: start: 20041115, end: 20041121
  2. WARFARIN SODIUM [Suspect]
     Dosage: 3 MG DAILY; PO
     Route: 048
     Dates: start: 20041030, end: 20041114
  3. WARFARIN SODIUM [Suspect]
     Dosage: 1.5 MG DAILY; PO
     Route: 048
     Dates: start: 20041115, end: 20041121
  4. BIO THREE [Concomitant]
  5. GANATON [Concomitant]
  6. EXCELASE [Concomitant]
  7. DEPAS [Concomitant]
  8. ARTIST [Concomitant]

REACTIONS (5)
  - BLOOD PRESSURE SYSTOLIC DECREASED [None]
  - COAGULATION TIME PROLONGED [None]
  - DRUG INTERACTION [None]
  - INTRA-ABDOMINAL HAEMORRHAGE [None]
  - PROCEDURAL SITE REACTION [None]
